FAERS Safety Report 19495940 (Version 1)
Quarter: 2021Q3

REPORT INFORMATION
  Report Type: Report from Study
  Country: US (occurrence: US)
  Receive Date: 20210706
  Receipt Date: 20210706
  Transmission Date: 20211014
  Serious: Yes (Disabling)
  Sender: FDA-Public Use
  Company Number: US-SA-2021SA220441

PATIENT
  Age: 40 Year
  Sex: Female

DRUGS (1)
  1. DUPIXENT [Suspect]
     Active Substance: DUPILUMAB
     Indication: DERMATITIS ATOPIC

REACTIONS (6)
  - Loss of personal independence in daily activities [Unknown]
  - Pruritus [Unknown]
  - Mood altered [Unknown]
  - Drug effect less than expected [Unknown]
  - Insomnia [Unknown]
  - Emotional disorder [Unknown]
